FAERS Safety Report 7482632-X (Version None)
Quarter: 2011Q2

REPORT INFORMATION
  Report Type: 
  Country: None (occurrence: None)
  Receive Date: 20110516
  Receipt Date: 20110505
  Transmission Date: 20111010
  Serious: Yes (Hospitalization, Other)
  Sender: FDA-Public Use
  Company Number: PHHY2009DE67613

PATIENT
  Sex: Female

DRUGS (1)
  1. EXTAVIA [Suspect]
     Dosage: UNK
     Dates: start: 20091123

REACTIONS (14)
  - MALAISE [None]
  - TREMOR [None]
  - NEURALGIA [None]
  - CARDIOVASCULAR DISORDER [None]
  - SENSATION OF HEAVINESS [None]
  - TEMPERATURE INTOLERANCE [None]
  - HEADACHE [None]
  - CHILLS [None]
  - DIZZINESS [None]
  - HERPES ZOSTER [None]
  - AFFECT LABILITY [None]
  - PARALYSIS [None]
  - CENTRAL NERVOUS SYSTEM LESION [None]
  - STRESS [None]
